FAERS Safety Report 8154036-8 (Version None)
Quarter: 2012Q1

REPORT INFORMATION
  Report Type: 
  Country: None (occurrence: None)
  Receive Date: 20120221
  Receipt Date: 20120221
  Transmission Date: 20120608
  Serious: Yes (Other)
  Sender: FDA-Public Use
  Company Number: None

PATIENT
  Age: 33 Year
  Sex: Female
  Weight: 72.574 kg

DRUGS (1)
  1. NORGESTREL AND ETHINYL ESTRADIOL [Suspect]
     Indication: CONTRACEPTION
     Dosage: 1 TABLET
     Route: 048
     Dates: start: 20050401, end: 20111015

REACTIONS (3)
  - PRODUCT PACKAGING ISSUE [None]
  - PRODUCT QUALITY ISSUE [None]
  - PREGNANCY ON ORAL CONTRACEPTIVE [None]
